FAERS Safety Report 8027029-9 (Version None)
Quarter: 2012Q1

REPORT INFORMATION
  Report Type: 
  Country: None (occurrence: None)
  Receive Date: 20120106
  Receipt Date: 20120104
  Transmission Date: 20120608
  Serious: Yes (Other)
  Sender: FDA-Public Use
  Company Number: IE-PFIZER INC-2011247525

PATIENT
  Age: 42 Year
  Sex: Male
  Weight: 85 kg

DRUGS (3)
  1. PARACETAMOL [Concomitant]
  2. DICLOFENAC [Concomitant]
  3. LYRICA [Suspect]
     Indication: ANALGESIC THERAPY
     Dosage: 75 MG, 2X/DAY
     Route: 048
     Dates: start: 20110101, end: 20110617

REACTIONS (6)
  - NIGHTMARE [None]
  - ABNORMAL DREAMS [None]
  - NAUSEA [None]
  - DECREASED APPETITE [None]
  - INSOMNIA [None]
  - NIGHT SWEATS [None]
